FAERS Safety Report 25951546 (Version 1)
Quarter: 2025Q4

REPORT INFORMATION
  Report Type: Spontaneous
  Country: IN (occurrence: IN)
  Receive Date: 20251023
  Receipt Date: 20251023
  Transmission Date: 20260118
  Serious: Yes (Other)
  Sender: PRECISION DOSE, INC.
  Company Number: IN-PRECISION DOSE, INC.-2025PRD00013

PATIENT
  Age: 21 Year
  Sex: Female

DRUGS (6)
  1. FOSFOMYCIN TROMETHAMINE [Suspect]
     Active Substance: FOSFOMYCIN TROMETHAMINE
     Indication: Pyelonephritis acute
     Dosage: UNK
     Route: 048
  2. FOSFOMYCIN TROMETHAMINE [Suspect]
     Active Substance: FOSFOMYCIN TROMETHAMINE
     Dosage: 4 G, EVERY 48 HOURS
  3. AMLODIPINE [Concomitant]
     Active Substance: AMLODIPINE BESYLATE
  4. METOPROLOL [Concomitant]
     Active Substance: METOPROLOL
  5. FUROSEMIDE [Concomitant]
     Active Substance: FUROSEMIDE
  6. Unspecified erythropoietin-stimulating agents [Concomitant]

REACTIONS (1)
  - Agranulocytosis [Recovered/Resolved]
